FAERS Safety Report 22098799 (Version 2)
Quarter: 2023Q2

REPORT INFORMATION
  Report Type: Spontaneous
  Country: FR (occurrence: FR)
  Receive Date: 20230315
  Receipt Date: 20230404
  Transmission Date: 20230722
  Serious: Yes (Hospitalization)
  Sender: FDA-Public Use
  Company Number: None

PATIENT
  Age: 77 Year
  Sex: Male
  Weight: 67 kg

DRUGS (5)
  1. EZETIMIBE\ROSUVASTATIN [Suspect]
     Active Substance: EZETIMIBE\ROSUVASTATIN
     Indication: Myocardial ischaemia
     Dosage: 1 DOSAGE FORM
     Route: 048
     Dates: start: 202205, end: 20230210
  2. VALACYCLOVIR HYDROCHLORIDE [Suspect]
     Active Substance: VALACYCLOVIR HYDROCHLORIDE
     Indication: Antiviral prophylaxis
     Dosage: 1000 MG, QD (500 MG TWICE A DAY)
     Route: 048
     Dates: start: 20230112, end: 20230208
  3. AUGMENTIN [Suspect]
     Active Substance: AMOXICILLIN\CLAVULANATE POTASSIUM
     Indication: Bronchopneumopathy
     Dosage: 3 GRAM
     Route: 048
     Dates: start: 20230206, end: 20230208
  4. REVLIMID [Suspect]
     Active Substance: LENALIDOMIDE
     Indication: Lymphoma
     Dosage: 25 MILLIGRAM
     Route: 048
     Dates: start: 20230112, end: 20230208
  5. TAFASITAMAB [Suspect]
     Active Substance: TAFASITAMAB
     Indication: Lymphoma
     Dosage: 800 MILLIGRAM, QW
     Route: 042
     Dates: start: 20230123, end: 20230130

REACTIONS (1)
  - Hepatic cytolysis [Recovered/Resolved]

NARRATIVE: CASE EVENT DATE: 20230208
